FAERS Safety Report 9173299 (Version 1)
Quarter: 2013Q1

REPORT INFORMATION
  Report Type: Report from Study
  Country: CA (occurrence: CA)
  Receive Date: 20130320
  Receipt Date: 20130320
  Transmission Date: 20140127
  Serious: Yes (Hospitalization)
  Sender: FDA-Public Use
  Company Number: CA-BAYER-2013-034395

PATIENT
  Age: 51 Year
  Sex: Female

DRUGS (6)
  1. BETASERON [Suspect]
     Indication: MULTIPLE SCLEROSIS
     Dosage: 0.225 MG, QOD
     Route: 058
     Dates: start: 19960101
  2. CITALOPRAM [Concomitant]
  3. ADVAIR [Concomitant]
  4. RABEPRAZOLE [Concomitant]
  5. ANTIHISTAMINES [Concomitant]
  6. ESTROGEN NOS [Concomitant]

REACTIONS (7)
  - Abscess [Not Recovered/Not Resolved]
  - Injection site erythema [Not Recovered/Not Resolved]
  - Injection site warmth [Not Recovered/Not Resolved]
  - Injection site pain [Not Recovered/Not Resolved]
  - Feeling cold [Not Recovered/Not Resolved]
  - Oropharyngeal pain [Not Recovered/Not Resolved]
  - Aphonia [Not Recovered/Not Resolved]
